FAERS Safety Report 13389382 (Version 1)
Quarter: 2017Q1

REPORT INFORMATION
  Report Type: Report from Study
  Country: None (occurrence: AU)
  Receive Date: 20170331
  Receipt Date: 20170331
  Transmission Date: 20170429
  Serious: Yes (Hospitalization)
  Sender: FDA-Public Use
  Company Number: AU-ABBVIE-17K-008-1926174-00

PATIENT
  Age: 25 Year
  Sex: Female

DRUGS (1)
  1. HUMIRA [Suspect]
     Active Substance: ADALIMUMAB
     Indication: CROHN^S DISEASE
     Route: 058
     Dates: end: 201703

REACTIONS (3)
  - Gastrointestinal inflammation [Recovered/Resolved with Sequelae]
  - Intestinal obstruction [Recovering/Resolving]
  - Abdominal adhesions [Unknown]

NARRATIVE: CASE EVENT DATE: 20170321
